FAERS Safety Report 15659106 (Version 1)
Quarter: 2018Q4

REPORT INFORMATION
  Report Type: Spontaneous
  Country: IT (occurrence: IT)
  Receive Date: 20181127
  Receipt Date: 20181127
  Transmission Date: 20190205
  Serious: Yes (Hospitalization)
  Sender: FDA-Public Use
  Company Number: IT-SANIK-2018SA318280AA

PATIENT
  Age: 84 Year
  Sex: Male

DRUGS (7)
  1. TRIATEC [RAMIPRIL] [Concomitant]
     Indication: HYPERTENSION
     Dosage: 2.5 MG
     Route: 048
  2. AVODART [Concomitant]
     Active Substance: DUTASTERIDE
     Dosage: 0.5 MG
     Route: 048
  3. PEPTAZOL [LANSOPRAZOLE] [Concomitant]
     Dosage: 20 MG
     Route: 048
  4. EUTIROX [Concomitant]
     Active Substance: LEVOTHYROXINE SODIUM
     Dosage: 100 UG
     Route: 048
  5. EUTIROX [Concomitant]
     Active Substance: LEVOTHYROXINE SODIUM
     Dosage: 125 UG
     Route: 048
  6. PLAVIX [Suspect]
     Active Substance: CLOPIDOGREL BISULFATE
     Indication: TRANSIENT ISCHAEMIC ATTACK
     Dosage: UNK
  7. OMNIC [Concomitant]
     Active Substance: TAMSULOSIN HYDROCHLORIDE
     Dosage: 0.4 MG
     Route: 048

REACTIONS (3)
  - Hemiparesis [Unknown]
  - Subdural haematoma [Unknown]
  - Delayed ischaemic neurological deficit [Unknown]

NARRATIVE: CASE EVENT DATE: 20181106
